FAERS Safety Report 6222052-9 (Version None)
Quarter: 2009Q2

REPORT INFORMATION
  Report Type: 
  Country: None (occurrence: None)
  Receive Date: 20090608
  Receipt Date: 20090608
  Transmission Date: 20091009
  Serious: No
  Sender: FDA-Public Use
  Company Number: None

PATIENT
  Sex: Female

DRUGS (1)
  1. LAMOTRIGINE [Suspect]
     Indication: BIPOLAR DISORDER
     Dosage: 100MG 3QHS PO
     Route: 048
     Dates: start: 20090601, end: 20090605

REACTIONS (5)
  - BREAST PAIN [None]
  - DEPRESSION [None]
  - DISORIENTATION [None]
  - PRODUCT SUBSTITUTION ISSUE [None]
  - SKIN EXFOLIATION [None]
